FAERS Safety Report 5209625-7 (Version None)
Quarter: 2007Q1

REPORT INFORMATION
  Report Type: 
  Country: None (occurrence: None)
  Receive Date: 20070111
  Receipt Date: 20070103
  Transmission Date: 20070707
  Serious: Yes (Hospitalization)
  Sender: FDA-Public Use
  Company Number: GXKR2007GB00475

PATIENT
  Age: 46 Year
  Sex: Male

DRUGS (7)
  1. DOXYCYCLINE [Suspect]
     Indication: ORCHITIS
     Dosage: 200 MG BID ORAL
     Route: 048
     Dates: start: 20060902, end: 20060907
  2. ASPIRIN [Concomitant]
  3. CIPROFLOXACIN [Concomitant]
  4. HUMALOG [Concomitant]
  5. INSULIN GLARGINE [Concomitant]
  6. LOSARTAN POTASSIUM [Concomitant]
  7. SIMVASTATIN [Concomitant]

REACTIONS (1)
  - LIVER FUNCTION TEST ABNORMAL [None]
